FAERS Safety Report 4685822-4 (Version None)
Quarter: 2005Q2

REPORT INFORMATION
  Report Type: 
  Country: None (occurrence: None)
  Receive Date: 20050609
  Receipt Date: 20050531
  Transmission Date: 20051028
  Serious: Yes (Hospitalization)
  Sender: FDA-Public Use
  Company Number: CZ-JNJFOC-20050503971

PATIENT
  Sex: Female

DRUGS (4)
  1. INFLIXIMAB [Suspect]
     Route: 042
  2. METHOTREXATE [Concomitant]
  3. PREDNISON [Concomitant]
  4. NSAIDS [Concomitant]

REACTIONS (1)
  - PERITONEAL TUBERCULOSIS [None]
